FAERS Safety Report 15289085 (Version 3)
Quarter: 2018Q3

REPORT INFORMATION
  Report Type: Spontaneous
  Country: US (occurrence: US)
  Receive Date: 20180817
  Receipt Date: 20180921
  Transmission Date: 20181010
  Serious: Yes (Hospitalization)
  Sender: FDA-Public Use
  Company Number: US-SA-2018SA222913

PATIENT
  Age: 52 Year
  Sex: Female

DRUGS (2)
  1. ALIROCUMAB PREFILLED PEN [Suspect]
     Active Substance: ALIROCUMAB
     Indication: HEPATIC STEATOSIS
     Dosage: 75 MG, QOW
     Route: 058
     Dates: start: 20180524
  2. PRALUENT [Suspect]
     Active Substance: ALIROCUMAB
     Indication: HEPATIC STEATOSIS
     Dosage: 75 MG, QOW
     Route: 058
     Dates: start: 20180524

REACTIONS (2)
  - Pancreatitis acute [Unknown]
  - Fatigue [Unknown]
